FAERS Safety Report 7363583-8 (Version None)
Quarter: 2011Q1

REPORT INFORMATION
  Report Type: 
  Country: None (occurrence: None)
  Receive Date: 20110321
  Receipt Date: 20110315
  Transmission Date: 20110831
  Serious: Yes (Other)
  Sender: FDA-Public Use
  Company Number: US-PFIZER INC-2011058062

PATIENT
  Sex: Female

DRUGS (3)
  1. BENADRYL [Suspect]
     Dosage: UNK
  2. ALAVERT [Suspect]
     Indication: HYPERSENSITIVITY
     Dosage: UNK
  3. ZYRTEC [Suspect]

REACTIONS (2)
  - DRUG ABUSE [None]
  - DRUG EFFECT DECREASED [None]
